FAERS Safety Report 7321690-X (Version None)
Quarter: 2011Q1

REPORT INFORMATION
  Report Type: 
  Country: None (occurrence: None)
  Receive Date: 20110223
  Receipt Date: 20110223
  Transmission Date: 20110831
  Serious: Yes (Life-Threatening)
  Sender: FDA-Public Use
  Company Number: None

PATIENT
  Sex: Female
  Weight: 79.3795 kg

DRUGS (1)
  1. SYNCHROMED II CONCENTRATION 1 MORPHINE, MEDTRONICS MORPHINE INFUSION [Suspect]
     Indication: PAIN
     Dosage: RESERVOIR 40ML, 1.001QD DAILY CUTANEOUS
     Route: 003
     Dates: start: 20101010, end: 20110222

REACTIONS (15)
  - INFLUENZA LIKE ILLNESS [None]
  - CHEST PAIN [None]
  - VOMITING [None]
  - INFUSION SITE EXTRAVASATION [None]
  - ASTHENIA [None]
  - IMPLANT SITE EFFUSION [None]
  - MEDICAL DEVICE COMPLICATION [None]
  - GROIN PAIN [None]
  - DIARRHOEA [None]
  - COLITIS [None]
  - PROCEDURAL PAIN [None]
  - NAUSEA [None]
  - INADEQUATE ANALGESIA [None]
  - IMPLANT SITE PAIN [None]
  - MALAISE [None]
